FAERS Safety Report 12072782 (Version 1)
Quarter: 2016Q1

REPORT INFORMATION
  Report Type: Spontaneous
  Country: US (occurrence: US)
  Receive Date: 20160212
  Receipt Date: 20160212
  Transmission Date: 20160526
  Serious: No
  Sender: FDA-Public Use
  Company Number: US-PFIZER INC-2016021736

PATIENT
  Sex: Female
  Weight: 61.23 kg

DRUGS (7)
  1. SKELAXIN [Suspect]
     Active Substance: METAXALONE
     Indication: POST-TRAUMATIC STRESS DISORDER
     Dosage: 800 MG, 1X/DAY
     Dates: start: 2011, end: 2013
  2. NEURONTIN [Concomitant]
     Active Substance: GABAPENTIN
     Indication: NEURALGIA
     Dosage: 800 MG, 3X/DAY
     Dates: start: 2009
  3. ADDERALL [Concomitant]
     Active Substance: AMPHETAMINE ASPARTATE\AMPHETAMINE SULFATE\DEXTROAMPHETAMINE SACCHARATE\DEXTROAMPHETAMINE SULFATE
     Indication: ATTENTION DEFICIT/HYPERACTIVITY DISORDER
     Dosage: 300 MG, 2X/DAY
  4. NEURONTIN [Concomitant]
     Active Substance: GABAPENTIN
     Dosage: 400 MG, 4X/DAY, TAKES A 400MG CAPSULE FOUR TIMES DAILY ON TOP OF THESE TABLETS
  5. SKELAXIN [Suspect]
     Active Substance: METAXALONE
     Indication: COMPLEX REGIONAL PAIN SYNDROME
     Dosage: 800 MG, 1X/DAY
     Dates: start: 2014
  6. COGENTIN [Concomitant]
     Active Substance: BENZTROPINE MESYLATE
     Indication: DYSTONIA
     Dosage: 1 MG, 2X/DAY
     Dates: start: 201510
  7. SKELAXIN [Suspect]
     Active Substance: METAXALONE
     Indication: DYSTONIA
     Dosage: 800 MG, 1X/DAY
     Dates: start: 2009, end: 2011

REACTIONS (1)
  - Drug ineffective for unapproved indication [Unknown]
